FAERS Safety Report 7090188-9 (Version None)
Quarter: 2010Q4

REPORT INFORMATION
  Report Type: 
  Country: None (occurrence: None)
  Receive Date: 20101104
  Receipt Date: 20101104
  Transmission Date: 20110411
  Serious: Yes (Hospitalization)
  Sender: FDA-Public Use
  Company Number: None

PATIENT
  Age: 41 Year
  Sex: Female

DRUGS (1)
  1. TUBERSOL [Suspect]

REACTIONS (4)
  - COUGH [None]
  - DYSPNOEA [None]
  - RASH [None]
  - URTICARIA [None]
